FAERS Safety Report 7733225-8 (Version None)
Quarter: 2011Q3

REPORT INFORMATION
  Report Type: 
  Country: None (occurrence: None)
  Receive Date: 20110907
  Receipt Date: 20100818
  Transmission Date: 20111222
  Serious: No
  Sender: FDA-Public Use
  Company Number: US-BAYER-201033991NA

PATIENT
  Age: 25 Year
  Sex: Female

DRUGS (1)
  1. MIRENA [Suspect]
     Indication: CONTRACEPTION

REACTIONS (5)
  - VAGINAL HAEMORRHAGE [None]
  - DEVICE DISLOCATION [None]
  - VAGINAL DISCHARGE [None]
  - AMENORRHOEA [None]
  - DYSPAREUNIA [None]
